FAERS Safety Report 6829159-3 (Version None)
Quarter: 2010Q3

REPORT INFORMATION
  Report Type: 
  Country: None (occurrence: None)
  Receive Date: 20100709
  Receipt Date: 20070304
  Transmission Date: 20110219
  Serious: No
  Sender: FDA-Public Use
  Company Number: US-PFIZER INC-2007018235

PATIENT
  Sex: Female
  Weight: 72.57 kg

DRUGS (5)
  1. CHANTIX [Suspect]
     Indication: SMOKING CESSATION THERAPY
     Route: 048
     Dates: start: 20070302
  2. TOPROL-XL [Concomitant]
     Route: 048
  3. COZAAR [Concomitant]
     Route: 048
  4. LIPITOR [Concomitant]
     Route: 048
  5. ACETYLSALICYLIC ACID [Concomitant]
     Route: 048

REACTIONS (3)
  - ERYTHEMA [None]
  - MALAISE [None]
  - RASH [None]
